FAERS Safety Report 7731753-2 (Version None)
Quarter: 2011Q3

REPORT INFORMATION
  Report Type: 
  Country: None (occurrence: None)
  Receive Date: 20110906
  Receipt Date: 20110829
  Transmission Date: 20111222
  Serious: Yes (Hospitalization)
  Sender: FDA-Public Use
  Company Number: PHHY2011FR77441

PATIENT
  Age: 61 Year
  Sex: Female

DRUGS (5)
  1. LEVETIRACETAM [Concomitant]
     Indication: MENINGIOMA
     Dosage: UNK UKN, UNK
  2. CARBAMAZEPINE [Concomitant]
     Indication: EPILEPSY
  3. LEVETIRACETAM [Concomitant]
     Indication: EPILEPSY
  4. CARBAMAZEPINE [Concomitant]
     Indication: MENINGIOMA
     Dosage: UNK UKN, UNK
  5. VOLTAREN [Suspect]
     Indication: MUSCULOSKELETAL PAIN
     Dosage: UNK UKN, UNK
     Route: 048
     Dates: start: 20110315, end: 20110324

REACTIONS (5)
  - ADRENAL INSUFFICIENCY [None]
  - RECTAL HAEMORRHAGE [None]
  - COLITIS ISCHAEMIC [None]
  - ABDOMINAL PAIN LOWER [None]
  - ABDOMINAL PAIN [None]
